FAERS Safety Report 21670424 (Version 1)
Quarter: 2022Q4

REPORT INFORMATION
  Report Type: Report from Study
  Country: CA (occurrence: CA)
  Receive Date: 20221201
  Receipt Date: 20221201
  Transmission Date: 20230113
  Serious: Yes (Hospitalization)
  Sender: FDA-Public Use
  Company Number: CA-ABBVIE-4218505

PATIENT
  Sex: Male
  Weight: 70 kg

DRUGS (2)
  1. HUMIRA [Suspect]
     Active Substance: ADALIMUMAB
     Indication: Crohn^s disease
     Route: 058
     Dates: start: 20210710
  2. PREDNISONE [Concomitant]
     Active Substance: PREDNISONE
     Indication: Product used for unknown indication

REACTIONS (8)
  - Obstruction [Unknown]
  - Abdominal pain [Unknown]
  - Diarrhoea [Unknown]
  - Mass [Unknown]
  - Skin lesion [Unknown]
  - Erythema [Unknown]
  - Feeling abnormal [Unknown]
  - Skin haemorrhage [Unknown]
